FAERS Safety Report 7979749-X (Version None)
Quarter: 2011Q4

REPORT INFORMATION
  Report Type: 
  Country: None (occurrence: None)
  Receive Date: 20111214
  Receipt Date: 20111206
  Transmission Date: 20120403
  Serious: Yes (Other)
  Sender: FDA-Public Use
  Company Number: FR-JNJFOC-20111204234

PATIENT
  Sex: Male

DRUGS (7)
  1. URBANYL [Concomitant]
     Route: 065
     Dates: start: 20110917
  2. URBANYL [Concomitant]
     Dosage: 60MG OR 30MG DEPENDING ON THE PERIOD
     Route: 065
  3. LAMICTAL [Concomitant]
     Indication: PRODUCT USED FOR UNKNOWN INDICATION
     Route: 048
  4. ATARAX [Concomitant]
     Indication: PRODUCT USED FOR UNKNOWN INDICATION
     Route: 065
     Dates: start: 20110801
  5. RISPERDAL [Suspect]
     Indication: PRODUCT USED FOR UNKNOWN INDICATION
     Route: 048
     Dates: start: 20110929
  6. DEPAKENE [Concomitant]
     Indication: PRODUCT USED FOR UNKNOWN INDICATION
     Dosage: SINCE SEVERAL YEARS
     Route: 048
  7. URBANYL [Concomitant]
     Indication: PRODUCT USED FOR UNKNOWN INDICATION
     Route: 065

REACTIONS (5)
  - BLOOD CREATINE PHOSPHOKINASE INCREASED [None]
  - SWELLING FACE [None]
  - MYALGIA [None]
  - BALANCE DISORDER [None]
  - MUSCLE SPASMS [None]
